FAERS Safety Report 7850107-1 (Version None)
Quarter: 2011Q4

REPORT INFORMATION
  Report Type: 
  Country: None (occurrence: None)
  Receive Date: 20111026
  Receipt Date: 20111020
  Transmission Date: 20120403
  Serious: Yes (Hospitalization)
  Sender: FDA-Public Use
  Company Number: IE-ASTELLAS-2011EU007509

PATIENT
  Sex: Male

DRUGS (1)
  1. PROGRAF [Suspect]
     Dosage: UNK
     Route: 065

REACTIONS (2)
  - GASTROINTESTINAL TUBE INSERTION [None]
  - INTESTINAL OBSTRUCTION [None]
